FAERS Safety Report 16732575 (Version 1)
Quarter: 2019Q3

REPORT INFORMATION
  Report Type: Spontaneous
  Country: ES (occurrence: ES)
  Receive Date: 20190823
  Receipt Date: 20190823
  Transmission Date: 20191005
  Serious: Yes (Other)
  Sender: FDA-Public Use
  Company Number: PHHY2019ES194871

PATIENT
  Age: 76 Year
  Sex: Male

DRUGS (1)
  1. PROMETAX [Suspect]
     Active Substance: RIVASTIGMINE
     Indication: PRODUCT USED FOR UNKNOWN INDICATION
     Dosage: 13.8 MG, Q24H
     Route: 062
     Dates: start: 20190725, end: 20190727

REACTIONS (2)
  - Confusional state [Recovered/Resolved]
  - Product use issue [Recovered/Resolved]

NARRATIVE: CASE EVENT DATE: 20190725
